FAERS Safety Report 13499280 (Version 2)
Quarter: 2017Q2

REPORT INFORMATION
  Report Type: Spontaneous
  Country: JP (occurrence: JP)
  Receive Date: 20170501
  Receipt Date: 20170601
  Transmission Date: 20170830
  Serious: Yes (Congenital Anomaly)
  Sender: FDA-Public Use
  Company Number: JP-SUNOVION-2017SUN001819

PATIENT
  Age: 0 Day
  Sex: Female
  Weight: 3.12 kg

DRUGS (4)
  1. BELSOMRA [Suspect]
     Active Substance: SUVOREXANT
     Route: 064
     Dates: end: 20170213
  2. LUNESTA [Suspect]
     Active Substance: ESZOPICLONE
     Dosage: 2 MG, QD
     Route: 064
     Dates: start: 20170207, end: 20170409
  3. LUNESTA [Suspect]
     Active Substance: ESZOPICLONE
     Dosage: 3 MG, QD
     Route: 064
  4. ROZEREM [Suspect]
     Active Substance: RAMELTEON
     Dosage: DOSE UNKNOWN
     Route: 064
     Dates: start: 20170214, end: 20170409

REACTIONS (1)
  - Renal aplasia [Not Recovered/Not Resolved]

NARRATIVE: CASE EVENT DATE: 20170413
